FAERS Safety Report 6445027-3 (Version None)
Quarter: 2009Q4

REPORT INFORMATION
  Report Type: 
  Country: None (occurrence: None)
  Receive Date: 20091118
  Receipt Date: 20091109
  Transmission Date: 20100525
  Serious: Yes (Life-Threatening, Hospitalization)
  Sender: FDA-Public Use
  Company Number: DE-MERCK-0908DEU00048

PATIENT
  Age: 29 Year
  Sex: Male
  Weight: 103 kg

DRUGS (2)
  1. VYTORIN [Suspect]
     Indication: HYPERTRIGLYCERIDAEMIA
     Route: 048
     Dates: start: 20040101, end: 20090701
  2. LISINOPRIL [Concomitant]
     Indication: HYPERTENSION
     Route: 048
     Dates: start: 20041001

REACTIONS (5)
  - CHOLECYSTITIS ACUTE [None]
  - GALLBLADDER PERFORATION [None]
  - GASTRITIS [None]
  - GASTROOESOPHAGEAL REFLUX DISEASE [None]
  - PERITONITIS [None]
